FAERS Safety Report 5280483-8 (Version None)
Quarter: 2007Q1

REPORT INFORMATION
  Report Type: 
  Country: None (occurrence: None)
  Receive Date: 20070329
  Receipt Date: 20070326
  Transmission Date: 20070707
  Serious: Yes (Hospitalization)
  Sender: FDA-Public Use
  Company Number: GB-ALLERGAN-0701674US

PATIENT
  Age: 29 Year
  Sex: Male

DRUGS (2)
  1. BOTOX 100 UNITS [Suspect]
     Indication: HYPERHIDROSIS
     Dosage: 100 UNITS, UNK
     Route: 058
     Dates: start: 20070119, end: 20070119
  2. BOTOX 100 UNITS [Suspect]
     Dosage: 100 UNITS, UNK
     Route: 058
     Dates: start: 20061016, end: 20061016

REACTIONS (1)
  - HEADACHE [None]
